FAERS Safety Report 10707248 (Version 1)
Quarter: 2015Q1

REPORT INFORMATION
  Report Type: Spontaneous
  Country: US (occurrence: None)
  Receive Date: 20150112
  Receipt Date: 20150112
  Transmission Date: 20150721
  Serious: Yes (Other)
  Sender: FDA-Public Use
  Company Number: None

PATIENT
  Age: 50 Year
  Sex: Male

DRUGS (1)
  1. TEMOZOLOMIDE. [Suspect]
     Active Substance: TEMOZOLOMIDE
     Indication: NEOPLASM MALIGNANT
     Dosage: 360MG QD X 5 DAY PO
     Route: 048
     Dates: start: 20141003, end: 20150110

REACTIONS (2)
  - Treatment failure [None]
  - Condition aggravated [None]

NARRATIVE: CASE EVENT DATE: 20150110
